FAERS Safety Report 12301451 (Version 4)
Quarter: 2017Q2

REPORT INFORMATION
  Report Type: Report from Study
  Country: JP (occurrence: JP)
  Receive Date: 20160425
  Receipt Date: 20170504
  Transmission Date: 20170830
  Serious: Yes (Death, Hospitalization)
  Sender: FDA-Public Use
  Company Number: JP-ASTRAZENECA-2015SE14380

PATIENT
  Age: 29223 Day
  Sex: Female
  Weight: 38.3 kg

DRUGS (16)
  1. TAGRISSO [Suspect]
     Active Substance: OSIMERTINIB
     Indication: NON-SMALL CELL LUNG CANCER METASTATIC
     Route: 048
     Dates: start: 20140619
  2. AMLODIPINE BESILATE [Suspect]
     Active Substance: AMLODIPINE BESYLATE
     Indication: HYPERTENSION
     Route: 048
     Dates: end: 20150212
  3. BIFIDOBACTERIUM LONGUM [Concomitant]
     Active Substance: BIFIDOBACTERIUM LONGUM
     Indication: DIARRHOEA
     Dosage: 3 TABLET TID
     Route: 048
  4. TAGRISSO [Suspect]
     Active Substance: OSIMERTINIB
     Indication: NON-SMALL CELL LUNG CANCER METASTATIC
     Route: 048
     Dates: start: 20140703
  5. SITAGLIPTIN PHOSPHATE [Suspect]
     Active Substance: SITAGLIPTIN PHOSPHATE
     Indication: DIABETES MELLITUS
     Route: 048
     Dates: end: 20150212
  6. HEPARINOID [Concomitant]
     Active Substance: CHONDROITIN SULFATE (BOVINE)
     Indication: HYPERKERATOSIS
     Dosage: AS REQUIRED
     Route: 003
  7. DEXAMETHASONE. [Concomitant]
     Active Substance: DEXAMETHASONE
     Indication: STOMATITIS
     Dosage: AS REQUIRED
     Route: 048
  8. LANSOPRAZOLE. [Suspect]
     Active Substance: LANSOPRAZOLE
     Indication: GASTROOESOPHAGEAL REFLUX DISEASE
     Route: 048
     Dates: end: 20150122
  9. ATORVASTATIN CALCIUM. [Concomitant]
     Active Substance: ATORVASTATIN CALCIUM
     Indication: DYSLIPIDAEMIA
     Route: 048
  10. HIRUDOID SOF [Concomitant]
     Indication: HYPERKERATOSIS
     Dosage: AS REQUIRED
     Route: 003
  11. ETHYL ICOSAPENTATE [Suspect]
     Active Substance: ICOSAPENT ETHYL
     Indication: DYSLIPIDAEMIA
     Route: 048
     Dates: end: 20150212
  12. CYANOCOBALAMIN. [Concomitant]
     Active Substance: CYANOCOBALAMIN
     Indication: CATARACT
     Dosage: AS REQUIRED
     Route: 047
  13. UREA. [Concomitant]
     Active Substance: UREA
     Indication: HYPERKERATOSIS
     Dosage: AS REQUIRED
     Route: 003
  14. LULICONAZOLE [Concomitant]
     Active Substance: LULICONAZOLE
     Indication: TINEA PEDIS
     Dosage: AS REQUIRED
     Route: 003
  15. ELDECALCITROL [Suspect]
     Active Substance: CALCIUM CARBONATE\ERGOCALCIFEROL\RETINOL
     Indication: OSTEOPOROSIS
     Route: 048
     Dates: end: 20150212
  16. HEPARINOID [Concomitant]
     Active Substance: CHONDROITIN SULFATE (BOVINE)
     Indication: HYPERKERATOSIS
     Dosage: AS REQUIRED
     Route: 003

REACTIONS (4)
  - Aplastic anaemia [Not Recovered/Not Resolved]
  - Neutrophil count decreased [Not Recovered/Not Resolved]
  - Platelet count decreased [Not Recovered/Not Resolved]
  - Anaemia [Not Recovered/Not Resolved]

NARRATIVE: CASE EVENT DATE: 20150115
